FAERS Safety Report 7055659-X (Version None)
Quarter: 2010Q4

REPORT INFORMATION
  Report Type: 
  Country: None (occurrence: None)
  Receive Date: 20101020
  Receipt Date: 20101020
  Transmission Date: 20110411
  Serious: Yes (Disabling)
  Sender: FDA-Public Use
  Company Number: None

PATIENT
  Age: 63 Year
  Sex: Female
  Weight: 68.0396 kg

DRUGS (5)
  1. OXYCONTIN [Suspect]
     Indication: SCIATICA
     Dosage: 40 MG THREE TIMES DAY PO
     Route: 048
     Dates: start: 19950115, end: 20101003
  2. OXYCONTIN [Suspect]
     Indication: SCIATICA
     Dosage: 40 MG THREE TIMES DAY PO
     Route: 048
     Dates: start: 20101004, end: 20101019
  3. CIMETIDINE [Concomitant]
  4. ERYTHROMYCIN [Suspect]
  5. DIAZEPAM [Concomitant]

REACTIONS (3)
  - HOT FLUSH [None]
  - PARAESTHESIA [None]
  - PRODUCT FORMULATION ISSUE [None]
